FAERS Safety Report 9445854 (Version 1)
Quarter: 2013Q3

REPORT INFORMATION
  Report Type: Report from Study
  Country: US (occurrence: US)
  Receive Date: 20130807
  Receipt Date: 20130807
  Transmission Date: 20140515
  Serious: Yes (Hospitalization)
  Sender: FDA-Public Use
  Company Number: US-BRISTOL-MYERS SQUIBB COMPANY-16719114

PATIENT
  Age: 62 Year
  Sex: Male

DRUGS (22)
  1. DACLATASVIR [Suspect]
     Indication: CHRONIC HEPATITIS C
     Route: 048
     Dates: start: 20120117, end: 20120622
  2. PEGINTERFERON ALFA-2A [Suspect]
     Indication: CHRONIC HEPATITIS C
     Route: 058
     Dates: start: 20120117, end: 20120622
  3. RIBAVIRIN [Suspect]
     Indication: CHRONIC HEPATITIS C
     Route: 048
     Dates: start: 20120117, end: 20120622
  4. REYATAZ CAPS 300 MG [Suspect]
     Route: 048
     Dates: start: 200604
  5. NORVIR [Concomitant]
     Route: 048
     Dates: start: 200604
  6. VIREAD [Concomitant]
     Route: 048
     Dates: start: 200604
  7. EPZICOM [Concomitant]
     Dosage: TABS
     Route: 048
     Dates: start: 200604
  8. VENLAFAXINE HCL [Concomitant]
     Indication: DEPRESSION
     Route: 048
     Dates: start: 19990917
  9. NUVIGIL [Concomitant]
     Route: 048
     Dates: start: 20101123
  10. BUPROPION [Concomitant]
     Route: 048
     Dates: start: 19980127
  11. AMBIEN CR [Concomitant]
     Indication: INSOMNIA
     Route: 048
     Dates: start: 20090903
  12. ACYCLOVIR [Concomitant]
     Route: 048
     Dates: start: 19970412
  13. VALPROIC ACID [Concomitant]
     Indication: BIPOLAR DISORDER
     Route: 048
     Dates: start: 20040608
  14. SEROQUEL [Concomitant]
     Route: 048
     Dates: start: 20040716
  15. FISH OIL [Concomitant]
     Route: 048
     Dates: start: 201001
  16. VITAMIN D [Concomitant]
     Route: 048
     Dates: start: 201001
  17. CALCIUM [Concomitant]
     Route: 048
     Dates: start: 201001
  18. MVI [Concomitant]
     Route: 048
     Dates: start: 201001
  19. NORCO [Concomitant]
     Dosage: Q4H PRN
     Route: 048
     Dates: start: 20120212
  20. DOXYCYCLINE [Concomitant]
     Dates: start: 20120212
  21. PROCRIT [Concomitant]
     Dosage: 1000
     Route: 058
  22. NEUPOGEN [Concomitant]
     Dates: start: 20120302, end: 20120524

REACTIONS (3)
  - Depression [Recovered/Resolved]
  - Dizziness [Recovered/Resolved]
  - Anaemia [Recovered/Resolved]
